FAERS Safety Report 5394149-7 (Version None)
Quarter: 2007Q3

REPORT INFORMATION
  Report Type: 
  Country: None (occurrence: None)
  Receive Date: 20070723
  Receipt Date: 20070710
  Transmission Date: 20080115
  Serious: Yes (Other)
  Sender: FDA-Public Use
  Company Number: JP-ROCHE-497323

PATIENT
  Age: 47 Year
  Sex: Female
  Weight: 56 kg

DRUGS (6)
  1. TAMIFLU [Suspect]
     Route: 048
     Dates: start: 20070227, end: 20070228
  2. FENTANYL CITRATE [Suspect]
     Indication: ANAESTHESIA
     Route: 042
     Dates: start: 20070228, end: 20070228
  3. ROPIVACAINE [Suspect]
     Indication: ANAESTHESIA
     Dosage: DRUG REPORTED AS ANAPEINE.
     Route: 008
     Dates: start: 20070228, end: 20070228
  4. PENTAGIN [Concomitant]
     Route: 042
     Dates: start: 20070228, end: 20070228
  5. ATARAX [Concomitant]
     Route: 042
     Dates: start: 20070228, end: 20070228
  6. CEFOPERAZONE SODIUM/SULBACTAM SODIUM [Concomitant]
     Dosage: DRUG REPORTED AS WYSTAL.
     Route: 042
     Dates: start: 20070228, end: 20070228

REACTIONS (1)
  - ABNORMAL BEHAVIOUR [None]
